FAERS Safety Report 4706293-5 (Version None)
Quarter: 2005Q2

REPORT INFORMATION
  Report Type: 
  Country: None (occurrence: None)
  Receive Date: 20050629
  Receipt Date: 20050325
  Transmission Date: 20051028
  Serious: No
  Sender: FDA-Public Use
  Company Number: 05P-163-0286752-00

PATIENT
  Age: 40 Year
  Sex: Female
  Weight: 61.6892 kg

DRUGS (16)
  1. HUMIRA [Suspect]
     Indication: RHEUMATOID ARTHRITIS
     Dosage: 40 MG, 1 IN 2 WK, SUBCUTANEOUS
     Route: 058
     Dates: start: 20040401, end: 20050103
  2. NABUMETONE [Suspect]
     Indication: RHEUMATOID ARTHRITIS
  3. METHOTREXATE [Concomitant]
  4. ETANERCEPT [Concomitant]
  5. PREDNISONE TAB [Concomitant]
  6. BUCINDOLOL HYDROCHLORIDE [Concomitant]
  7. ORAL CONTRACEPTIVE PILLS [Concomitant]
  8. FLUTICASONE PROPIONATE [Concomitant]
  9. FOLIC ACID [Concomitant]
  10. MULTI-VITAMINS [Concomitant]
  11. CALCIUM WITH VITAMIN D [Concomitant]
  12. COD-LIVER OIL [Concomitant]
  13. UBIDECARENONE [Concomitant]
  14. GLUCOSAMINE [Concomitant]
  15. LINSEED OIL [Concomitant]
  16. LEVOTHYROXINE SODIUM [Concomitant]

REACTIONS (4)
  - FATIGUE [None]
  - LYMPHOMA [None]
  - RASH GENERALISED [None]
  - STOMACH DISCOMFORT [None]
